FAERS Safety Report 24642326 (Version 1)
Quarter: 2024Q4

REPORT INFORMATION
  Report Type: Report from Study
  Country: NL (occurrence: NL)
  Receive Date: 20241120
  Receipt Date: 20241120
  Transmission Date: 20250115
  Serious: Yes (Other)
  Sender: NOVARTIS
  Company Number: NL-002147023-NVSC2024NL222724

PATIENT
  Age: 34 Year
  Sex: Female

DRUGS (1)
  1. KESIMPTA [Suspect]
     Active Substance: OFATUMUMAB
     Indication: Relapsing multiple sclerosis
     Dosage: UNK UNK, Q4W
     Route: 058
     Dates: start: 20230526

REACTIONS (1)
  - Pertussis [Recovered/Resolved]

NARRATIVE: CASE EVENT DATE: 20240730
